FAERS Safety Report 6049351-8 (Version None)
Quarter: 2009Q1

REPORT INFORMATION
  Report Type: 
  Country: None (occurrence: None)
  Receive Date: 20090123
  Receipt Date: 20090113
  Transmission Date: 20090719
  Serious: Yes (Hospitalization)
  Sender: FDA-Public Use
  Company Number: FR-PFIZER INC-2009156743

PATIENT

DRUGS (11)
  1. PREGABALIN [Suspect]
     Indication: PAIN IN EXTREMITY
     Dosage: 1 DF, 2X/DAY
     Route: 048
     Dates: start: 20081115, end: 20081120
  2. PRISTINAMYCINE [Suspect]
     Indication: SUPERINFECTION
     Dosage: 2 DF, 3X/DAY
     Route: 048
     Dates: start: 20081119, end: 20081120
  3. CIPROFLOXACIN HCL [Suspect]
     Indication: SUPERINFECTION
     Dosage: 1 DF, 2X/DAY
     Route: 048
     Dates: start: 20081119, end: 20081120
  4. VITAMIN B1 AND B6 [Suspect]
     Indication: ASTHENIA
     Dosage: 1 TABLET
     Route: 048
     Dates: start: 20081113, end: 20081120
  5. INSULIN ASPART [Concomitant]
     Indication: DIABETES MELLITUS
     Dosage: UNK
     Route: 058
     Dates: start: 20081114
  6. METFORMINE ^MERCK^ [Concomitant]
  7. MORPHINE SULFATE [Concomitant]
     Dosage: UNK
     Dates: start: 20070101
  8. GLIBENCLAMIDE [Concomitant]
  9. OMEPRAZOLE [Concomitant]
  10. IBUPROFENE [Concomitant]
  11. LERCANIDIPINE CHLORHYDRATE [Concomitant]

REACTIONS (2)
  - PYREXIA [None]
  - RASH ERYTHEMATOUS [None]
